FAERS Safety Report 9942141 (Version 1)
Quarter: 2014Q1

REPORT INFORMATION
  Report Type: Report from Study
  Country: US (occurrence: US)
  Receive Date: 20140303
  Receipt Date: 20140303
  Transmission Date: 20141002
  Serious: No
  Sender: FDA-Public Use
  Company Number: US-ABBVIE-13P-163-1043873-00

PATIENT
  Age: 65 Year
  Sex: Female

DRUGS (7)
  1. HUMIRA [Suspect]
     Indication: CROHN^S DISEASE
     Dates: start: 20130116, end: 20130116
  2. HUMIRA [Suspect]
     Dates: start: 20130130
  3. AZULFIDINE [Concomitant]
     Indication: PRODUCT USED FOR UNKNOWN INDICATION
     Dosage: ORDERED TO TAKE 6 DAILY BUT USUALLY TAKES 2-4/DAY; NO EXPLANATION FOR TAKING SMALLER DOSE
  4. DYAZIDE [Concomitant]
     Indication: FLUID RETENTION
     Dosage: 3.75/25 MG DAILY
  5. CLONAZEPAM [Concomitant]
     Indication: PARTIAL SEIZURES
  6. VICODIN [Concomitant]
     Indication: RESTLESS LEGS SYNDROME
     Dosage: 1/2 UNKNOWN DOSE
  7. VICODIN [Concomitant]
     Indication: PAIN

REACTIONS (1)
  - Memory impairment [Unknown]
